FAERS Safety Report 5573400-4 (Version None)
Quarter: 2007Q4

REPORT INFORMATION
  Report Type: 
  Country: None (occurrence: None)
  Receive Date: 20071226
  Receipt Date: 20071217
  Transmission Date: 20080405
  Serious: Yes (Hospitalization, Other)
  Sender: FDA-Public Use
  Company Number: GB-JNJFOC-20071204300

PATIENT
  Sex: Female
  Weight: 64 kg

DRUGS (7)
  1. REMICADE [Suspect]
     Indication: RHEUMATOID ARTHRITIS
     Route: 042
  2. METHOTREXATE [Concomitant]
  3. CALCIUM D3 [Concomitant]
  4. FERROUS SULFATE TAB [Concomitant]
  5. HRT [Concomitant]
  6. INDOMETHACIN [Concomitant]
  7. LANSOPRAZOLE [Concomitant]

REACTIONS (1)
  - FEMUR FRACTURE [None]
